FAERS Safety Report 14167037 (Version 1)
Quarter: 2017Q4

REPORT INFORMATION
  Report Type: Report from Study
  Country: None (occurrence: BR)
  Receive Date: 20171108
  Receipt Date: 20171108
  Transmission Date: 20180321
  Serious: Yes (Other)
  Sender: FDA-Public Use
  Company Number: BR-ABBVIE-17K-020-2150472-00

PATIENT
  Sex: Male

DRUGS (1)
  1. HUMIRA [Suspect]
     Active Substance: ADALIMUMAB
     Indication: RHEUMATOID ARTHRITIS
     Route: 058
     Dates: start: 20110111, end: 201709

REACTIONS (5)
  - Osteitis [Unknown]
  - Nodule [Unknown]
  - Visual impairment [Unknown]
  - Osteoarthritis [Unknown]
  - Hypoacusis [Unknown]
